FAERS Safety Report 4695683-5 (Version None)
Quarter: 2005Q2

REPORT INFORMATION
  Report Type: 
  Country: None (occurrence: None)
  Receive Date: 20050621
  Receipt Date: 20050509
  Transmission Date: 20051028
  Serious: Yes (Hospitalization)
  Sender: FDA-Public Use
  Company Number: PHRM2005FR01494

PATIENT
  Age: 84 Year
  Sex: Female
  Weight: 44 kg

DRUGS (10)
  1. ALDACTONE [Suspect]
     Dosage: 25 MG, QD
     Route: 048
     Dates: start: 20031215, end: 20041208
  2. TRIATEC [Suspect]
     Dosage: 2.5 MG, QD
     Route: 048
     Dates: start: 20031215, end: 20041208
  3. EXELON [Suspect]
     Indication: DEMENTIA ALZHEIMER'S TYPE
     Dosage: 2 DF, QD
     Route: 048
     Dates: start: 20040715, end: 20041213
  4. SECTRAL [Suspect]
     Dosage: 100 MG, QD
     Route: 048
     Dates: start: 20031215
  5. LANZOR [Concomitant]
     Dosage: 15 MG, QD
     Route: 048
     Dates: start: 20031201
  6. ACTONEL [Concomitant]
     Dosage: 35 MG, QW
     Route: 048
     Dates: start: 20030101, end: 20041213
  7. VITAMIN B-12 [Concomitant]
     Dosage: 250 UG, QD
     Route: 048
     Dates: start: 20030101, end: 20041213
  8. PREVISCAN [Concomitant]
     Dosage: 15 MG, QD
     Route: 048
     Dates: start: 20030101
  9. PRAVACHOL [Concomitant]
     Dosage: 20 MG, QD
     Route: 048
     Dates: start: 20031215, end: 20041213
  10. OROCAL D3 [Concomitant]
     Route: 048
     Dates: start: 20030101, end: 20041213

REACTIONS (17)
  - BLOOD CALCIUM INCREASED [None]
  - BLOOD GLUCOSE INCREASED [None]
  - BLOOD PRESSURE SYSTOLIC INCREASED [None]
  - BRADYCARDIA [None]
  - BUNDLE BRANCH BLOCK RIGHT [None]
  - DIARRHOEA [None]
  - DISORIENTATION [None]
  - DRUG INTERACTION [None]
  - ELECTROCARDIOGRAM QT PROLONGED [None]
  - FALL [None]
  - GENERAL PHYSICAL HEALTH DETERIORATION [None]
  - HEADACHE [None]
  - LOSS OF CONSCIOUSNESS [None]
  - MALAISE [None]
  - MIOSIS [None]
  - PROTHROMBIN TIME RATIO DECREASED [None]
  - VOMITING [None]
